FAERS Safety Report 25915495 (Version 1)
Quarter: 2025Q4

REPORT INFORMATION
  Report Type: Spontaneous
  Country: AU (occurrence: AU)
  Receive Date: 20251013
  Receipt Date: 20251013
  Transmission Date: 20260118
  Serious: Yes (Other)
  Sender: GILEAD
  Company Number: AU-GILEAD-2025-0732280

PATIENT
  Sex: Female

DRUGS (1)
  1. YESCARTA [Suspect]
     Active Substance: AXICABTAGENE CILOLEUCEL
     Indication: High-grade B-cell lymphoma
     Dosage: UNK
     Route: 065

REACTIONS (2)
  - High-grade B-cell lymphoma [Unknown]
  - Drug ineffective [Unknown]
